FAERS Safety Report 8561247-6 (Version None)
Quarter: 2012Q3

REPORT INFORMATION
  Report Type: 
  Country: None (occurrence: None)
  Receive Date: 20120802
  Receipt Date: 20120717
  Transmission Date: 20120928
  Serious: No
  Sender: FDA-Public Use
  Company Number: US-ASTRAZENECA-2011SE41967

PATIENT
  Age: 58 Year
  Sex: Female

DRUGS (1)
  1. NEXIUM [Suspect]
     Route: 048

REACTIONS (5)
  - INTENTIONAL DRUG MISUSE [None]
  - DYSPEPSIA [None]
  - OBSESSIVE-COMPULSIVE DISORDER [None]
  - DRUG DOSE OMISSION [None]
  - ABDOMINAL PAIN [None]
